FAERS Safety Report 6288852-4 (Version None)
Quarter: 2009Q3

REPORT INFORMATION
  Report Type: 
  Country: None (occurrence: None)
  Receive Date: 20090729
  Receipt Date: 20090717
  Transmission Date: 20100115
  Serious: Yes (Death)
  Sender: FDA-Public Use
  Company Number: US-PFIZER INC-2009234180

PATIENT
  Sex: Male

DRUGS (2)
  1. GEODON [Suspect]
     Indication: MAJOR DEPRESSION
     Dosage: FREQUENCY: EVERY DAY;
     Route: 048
     Dates: start: 20080301, end: 20090621
  2. GEODON [Suspect]
     Indication: PSYCHOTIC DISORDER

REACTIONS (2)
  - COMPLETED SUICIDE [None]
  - MEMORY IMPAIRMENT [None]
